FAERS Safety Report 4870483-1 (Version None)
Quarter: 2006Q1

REPORT INFORMATION
  Report Type: 
  Country: None (occurrence: None)
  Receive Date: 20060103
  Receipt Date: 20051221
  Transmission Date: 20060701
  Serious: Yes (Death)
  Sender: FDA-Public Use
  Company Number: JP-BRISTOL-MYERS SQUIBB COMPANY-13225974

PATIENT
  Age: 66 Year
  Sex: Male

DRUGS (2)
  1. TAXOL [Suspect]
     Indication: NON-SMALL CELL LUNG CANCER
     Route: 041
  2. GEMZAR [Suspect]
     Indication: INTERSTITIAL LUNG DISEASE
     Route: 042

REACTIONS (1)
  - INTERSTITIAL LUNG DISEASE [None]
